FAERS Safety Report 8093998-4 (Version None)
Quarter: 2012Q1

REPORT INFORMATION
  Report Type: 
  Country: None (occurrence: None)
  Receive Date: 20120131
  Receipt Date: 20120124
  Transmission Date: 20120608
  Serious: Yes (Hospitalization)
  Sender: FDA-Public Use
  Company Number: PHHY2011CA101201

PATIENT
  Sex: Male

DRUGS (1)
  1. EXJADE [Suspect]
     Indication: THALASSAEMIA BETA
     Dosage: 1500 MG, UNK
     Route: 048
     Dates: start: 20110208

REACTIONS (3)
  - ABDOMINAL PAIN UPPER [None]
  - ABDOMINAL DISTENSION [None]
  - PNEUMONIA [None]
